FAERS Safety Report 10078408 (Version 1)
Quarter: 2014Q2

REPORT INFORMATION
  Report Type: Spontaneous
  Country: FR (occurrence: FR)
  Receive Date: 20140415
  Receipt Date: 20140415
  Transmission Date: 20141212
  Serious: Yes (Other)
  Sender: FDA-Public Use
  Company Number: FR-BAYER-2014-051443

PATIENT
  Age: 81 Year
  Sex: Female

DRUGS (2)
  1. SOTALOL [Suspect]
     Indication: ATRIAL TACHYCARDIA
     Dosage: 80 MG, BID
     Route: 048
  2. SOTALOL [Suspect]
     Indication: PALPITATIONS

REACTIONS (3)
  - Torsade de pointes [None]
  - Syncope [None]
  - Cerebral infarction [None]
